FAERS Safety Report 23435901 (Version 1)
Quarter: 2024Q1

REPORT INFORMATION
  Report Type: Spontaneous
  Country: PT (occurrence: PT)
  Receive Date: 20240124
  Receipt Date: 20240124
  Transmission Date: 20240410
  Serious: Yes (Hospitalization, Other)
  Sender: FDA-Public Use
  Company Number: PT-GRUNENTHAL-2023-318861

PATIENT

DRUGS (4)
  1. ROSUVASTATIN [Suspect]
     Active Substance: ROSUVASTATIN
     Indication: Diabetic nephropathy
     Dosage: 20 GRAM
     Route: 048
  2. ROSUVASTATIN [Suspect]
     Active Substance: ROSUVASTATIN
     Indication: Metabolic syndrome
  3. ROSUVASTATIN [Suspect]
     Active Substance: ROSUVASTATIN
     Indication: Low density lipoprotein increased
  4. ROSUVASTATIN [Suspect]
     Active Substance: ROSUVASTATIN
     Indication: Cardiovascular event prophylaxis

REACTIONS (10)
  - Dysphonia [Recovering/Resolving]
  - Muscle atrophy [Recovering/Resolving]
  - Gait disturbance [Recovering/Resolving]
  - Dysphagia [Recovering/Resolving]
  - Quadriparesis [Recovering/Resolving]
  - Decreased appetite [Recovering/Resolving]
  - Asthenia [Recovering/Resolving]
  - Rhabdomyolysis [Recovering/Resolving]
  - Immune-mediated myositis [Recovered/Resolved with Sequelae]
  - Muscular weakness [Recovering/Resolving]

NARRATIVE: CASE EVENT DATE: 20210601
